FAERS Safety Report 16867647 (Version 3)
Quarter: 2019Q4

REPORT INFORMATION
  Report Type: Spontaneous
  Country: PL (occurrence: PL)
  Receive Date: 20190930
  Receipt Date: 20191007
  Transmission Date: 20200122
  Serious: Yes (Death, Hospitalization, Other)
  Sender: FDA-Public Use
  Company Number: PL-PFIZER INC-2019404942

PATIENT
  Age: 66 Year
  Sex: Female

DRUGS (5)
  1. FUROSEMIDE. [Suspect]
     Active Substance: FUROSEMIDE
     Dosage: 40 MG, PER DAY
  2. ACETYLSALICYLIC ACID [Suspect]
     Active Substance: ASPIRIN
     Dosage: 75 MG, PER DAY
  3. SPIRONOLACTONE. [Suspect]
     Active Substance: SPIRONOLACTONE
     Dosage: 25 MG, PER DAY
  4. ENOXAPARINE [Suspect]
     Active Substance: ENOXAPARIN
     Dosage: 80 MG, PER DAY
  5. PANTOPRAZOLE [Suspect]
     Active Substance: PANTOPRAZOLE
     Dosage: 20 MG, 1X/DAY

REACTIONS (3)
  - Atrioventricular block complete [Fatal]
  - Electrocardiogram QRS complex prolonged [Fatal]
  - Cardiac arrest [Fatal]
